FAERS Safety Report 9339334 (Version 2)
Quarter: 2013Q3

REPORT INFORMATION
  Report Type: Spontaneous
  Country: US (occurrence: US)
  Receive Date: 20130610
  Receipt Date: 20130904
  Transmission Date: 20140515
  Serious: Yes (Hospitalization)
  Sender: FDA-Public Use
  Company Number: US-BAYER-2013-070205

PATIENT
  Age: 35 Year
  Sex: Female
  Weight: 78.01 kg

DRUGS (9)
  1. YAZ [Suspect]
  2. GLUCOPHAGE [Concomitant]
     Indication: POLYCYSTIC OVARIES
  3. NEXIUM [Concomitant]
  4. LEXAPRO [Concomitant]
  5. VICODIN [Concomitant]
     Dosage: UNK
     Dates: start: 20080106
  6. METHYLPREDNISOLONE [Concomitant]
     Dosage: UNK
     Dates: start: 20071011
  7. HYDROXYZINE [Concomitant]
     Dosage: UNK
     Dates: start: 20071027
  8. TOPROL XL [Concomitant]
  9. BUTALBITAL/CAFFEINE/PARACETAMOL/ [Concomitant]
     Dosage: UNK
     Dates: start: 20071210

REACTIONS (1)
  - Deep vein thrombosis [None]
